FAERS Safety Report 5996887-1 (Version None)
Quarter: 2008Q4

REPORT INFORMATION
  Report Type: 
  Country: None (occurrence: None)
  Receive Date: 20081212
  Receipt Date: 20081028
  Transmission Date: 20090506
  Serious: No
  Sender: FDA-Public Use
  Company Number: US-ABBOTT-08P-163-0484197-00

PATIENT
  Sex: Female

DRUGS (10)
  1. HUMIRA [Suspect]
     Indication: RHEUMATOID ARTHRITIS
     Route: 058
     Dates: start: 20080601, end: 20080617
  2. INSULIN [Concomitant]
     Indication: DIABETES MELLITUS
     Route: 058
  3. TRAMADOL HCL [Concomitant]
     Indication: ARTHRALGIA
  4. HYDROCODONE BITARTRATE [Concomitant]
     Indication: PAIN
  5. LEVOTHYROXINE SODIUM [Concomitant]
     Indication: DRUG USE FOR UNKNOWN INDICATION
  6. OLMESARTAN MEDOXOMIL [Concomitant]
     Indication: DRUG USE FOR UNKNOWN INDICATION
  7. SIMVASTATIN [Concomitant]
     Indication: DRUG USE FOR UNKNOWN INDICATION
  8. PHENOBARBITAL TAB [Concomitant]
     Indication: DRUG USE FOR UNKNOWN INDICATION
  9. ETODOLAC [Concomitant]
     Indication: DRUG USE FOR UNKNOWN INDICATION
  10. ACETAMINOPHEN [Concomitant]
     Indication: ARTHRALGIA

REACTIONS (4)
  - GINGIVAL PAIN [None]
  - PAIN [None]
  - TOOTH ABSCESS [None]
  - TOOTHACHE [None]
